FAERS Safety Report 9717660 (Version 1)
Quarter: 2013Q4

REPORT INFORMATION
  Report Type: Spontaneous
  Country: US (occurrence: None)
  Receive Date: 20131125
  Receipt Date: 20131125
  Transmission Date: 20140711
  Serious: Yes (Other)
  Sender: FDA-Public Use
  Company Number: 2013-US-003374

PATIENT
  Age: 55 Year
  Sex: Male
  Weight: 115.6 kg

DRUGS (6)
  1. XYREM (SODIUM OXYBATE) ORAL SOLUTION, 500MG/ML [Suspect]
     Indication: NARCOLEPSY
     Route: 048
     Dates: start: 201205
  2. XYREM (SODIUM OXYBATE) ORAL SOLUTION, 500MG/ML [Suspect]
     Indication: CATAPLEXY
     Route: 048
     Dates: start: 201205
  3. COUMADIN (WARFARIN SODIUM) [Suspect]
     Indication: ANTICOAGULANT THERAPY
     Dates: end: 201212
  4. XARELTO (RIVAROXABAN) [Concomitant]
  5. LISINOPRIL (LISINOPRIL) [Concomitant]
  6. CYMBALTA (DULOXETINE HYDROCHLORIDE) [Concomitant]

REACTIONS (8)
  - Blood pressure decreased [None]
  - Seizure like phenomena [None]
  - Coagulation time prolonged [None]
  - Dehydration [None]
  - Arthritis [None]
  - Pollakiuria [None]
  - Contrast media allergy [None]
  - Insomnia [None]
